FAERS Safety Report 5428175-6 (Version None)
Quarter: 2007Q3

REPORT INFORMATION
  Report Type: 
  Country: None (occurrence: None)
  Receive Date: 20070731
  Receipt Date: 20070519
  Transmission Date: 20080115
  Serious: No
  Sender: FDA-Public Use
  Company Number: US200705005168

PATIENT
  Age: 63 Year
  Sex: Female

DRUGS (4)
  1. BYETTA [Suspect]
     Indication: TYPE 2 DIABETES MELLITUS
     Dosage: 5 UG, SUBCU; 5 UG, SUBCU; 10 UG, 2/D, SUBCUTANEOUS
     Route: 058
     Dates: end: 20060801
  2. BYETTA [Suspect]
     Indication: TYPE 2 DIABETES MELLITUS
     Dosage: 5 UG, SUBCU; 5 UG, SUBCU; 10 UG, 2/D, SUBCUTANEOUS
     Route: 058
     Dates: end: 20060801
  3. BYETTA [Suspect]
     Indication: TYPE 2 DIABETES MELLITUS
     Dosage: 5 UG, SUBCU; 5 UG, SUBCU; 10 UG, 2/D, SUBCUTANEOUS
     Route: 058
     Dates: start: 20060801
  4. GLIPIZIDE [Concomitant]

REACTIONS (1)
  - BLOOD GLUCOSE INCREASED [None]
